FAERS Safety Report 7153726-3 (Version None)
Quarter: 2010Q4

REPORT INFORMATION
  Report Type: 
  Country: None (occurrence: None)
  Receive Date: 20101213
  Receipt Date: 20101201
  Transmission Date: 20110411
  Serious: Yes (Other)
  Sender: FDA-Public Use
  Company Number: US-SANOFI-AVENTIS-2010SA073557

PATIENT
  Sex: Female
  Weight: 74 kg

DRUGS (6)
  1. MULTAQ [Suspect]
     Indication: ATRIAL FIBRILLATION
     Route: 048
     Dates: start: 20100201, end: 20100201
  2. MULTAQ [Suspect]
     Route: 048
     Dates: start: 20100201, end: 20100801
  3. MULTAQ [Suspect]
     Dosage: 400 MG QAM AND 200 MG QHS
     Route: 048
     Dates: start: 20101129
  4. ACCUPRIL [Concomitant]
  5. TENORMIN [Concomitant]
  6. SYNTHROID [Concomitant]

REACTIONS (3)
  - ATRIAL FIBRILLATION [None]
  - INSOMNIA [None]
  - UNDERDOSE [None]
